FAERS Safety Report 20991194 (Version 1)
Quarter: 2022Q2

REPORT INFORMATION
  Report Type: Spontaneous
  Country: US (occurrence: US)
  Receive Date: 20220622
  Receipt Date: 20220622
  Transmission Date: 20220720
  Serious: No
  Sender: FDA-Public Use
  Company Number: US-IGSA-BIG0015344

PATIENT
  Sex: Female

DRUGS (2)
  1. HYPERRAB [Suspect]
     Active Substance: HUMAN RABIES VIRUS IMMUNE GLOBULIN
     Indication: Infection prophylaxis
     Dosage: UNK UNKNOWN, UNKNOWN
  2. RABIES VACCINE [Concomitant]
     Active Substance: RABIES VACCINE

REACTIONS (2)
  - Malaise [Not Recovered/Not Resolved]
  - Product administration error [Unknown]
